FAERS Safety Report 18506079 (Version 3)
Quarter: 2021Q1

REPORT INFORMATION
  Report Type: Spontaneous
  Country: DE (occurrence: DE)
  Receive Date: 20201116
  Receipt Date: 20210128
  Transmission Date: 20210419
  Serious: Yes (Hospitalization, Other)
  Sender: FDA-Public Use
  Company Number: DE-NOVOPROD-766371

PATIENT
  Age: 48 Year
  Sex: Female
  Weight: 74 kg

DRUGS (3)
  1. NOVORAPID [Suspect]
     Active Substance: INSULIN ASPART
     Dosage: DOSE INCREASED
     Route: 058
  2. NOVORAPID [Suspect]
     Active Substance: INSULIN ASPART
     Indication: TYPE 1 DIABETES MELLITUS
     Dosage: UNK
     Route: 058
     Dates: start: 20201028
  3. L?THYROXIN [LEVOTHYROXINE] [Concomitant]
     Active Substance: LEVOTHYROXINE SODIUM
     Dosage: 1?0?0 (IN THE MORNING) QD
     Route: 048

REACTIONS (3)
  - Diabetic ketoacidosis [Recovered/Resolved]
  - Product physical issue [Unknown]
  - Product leakage [Unknown]

NARRATIVE: CASE EVENT DATE: 20201030
